FAERS Safety Report 6260759-8 (Version None)
Quarter: 2009Q3

REPORT INFORMATION
  Report Type: 
  Country: None (occurrence: None)
  Receive Date: 20090706
  Receipt Date: 20090623
  Transmission Date: 20100115
  Serious: Yes (Other)
  Sender: FDA-Public Use
  Company Number: SPI200900205

PATIENT
  Sex: Female

DRUGS (1)
  1. AMITIZA [Suspect]
     Indication: CONSTIPATION
     Dates: start: 20090101, end: 20090609

REACTIONS (2)
  - INTESTINAL PERFORATION [None]
  - NEUROPATHY PERIPHERAL [None]
